FAERS Safety Report 5231845-6 (Version None)
Quarter: 2007Q1

REPORT INFORMATION
  Report Type: 
  Country: None (occurrence: None)
  Receive Date: 20070206
  Receipt Date: 20070125
  Transmission Date: 20070707
  Serious: Yes (Other)
  Sender: FDA-Public Use
  Company Number: DK-PFIZER INC-2006128646

PATIENT
  Sex: Male
  Weight: 80 kg

DRUGS (1)
  1. VIAGRA [Suspect]
     Indication: ERECTILE DYSFUNCTION
     Route: 048
     Dates: start: 19980101, end: 20060501

REACTIONS (3)
  - CENTRAL NERVOUS SYSTEM LESION [None]
  - CONFUSIONAL STATE [None]
  - DEMENTIA [None]
